FAERS Safety Report 5264323-9 (Version None)
Quarter: 2007Q1

REPORT INFORMATION
  Report Type: 
  Country: None (occurrence: None)
  Receive Date: 20061213
  Receipt Date: 20050124
  Transmission Date: 20070707
  Serious: Yes (Other)
  Sender: FDA-Public Use
  Company Number: 2005UW01271

PATIENT
  Age: 73 Year
  Sex: Male
  Weight: 72.574 kg

DRUGS (3)
  1. IRESSA [Suspect]
     Indication: NON-SMALL CELL LUNG CANCER
  2. LOVASTATIN [Concomitant]
  3. BABY ACETYLSALICYLIC ACID [Concomitant]

REACTIONS (3)
  - DIARRHOEA [None]
  - DIPLOPIA [None]
  - RASH [None]
